FAERS Safety Report 8382535-2 (Version None)
Quarter: 2012Q2

REPORT INFORMATION
  Report Type: 
  Country: None (occurrence: None)
  Receive Date: 20120524
  Receipt Date: 20120522
  Transmission Date: 20120825
  Serious: Yes (Death, Hospitalization, Other)
  Sender: FDA-Public Use
  Company Number: PHEH2006US12309

PATIENT
  Sex: Female
  Weight: 74.829 kg

DRUGS (23)
  1. PENICILLIN [Concomitant]
     Dosage: 500 MG, UNK
  2. PEPCID [Concomitant]
     Dosage: 20 MG, UNK
  3. METOPROLOL [Concomitant]
  4. ZOMETA [Suspect]
     Route: 042
  5. NORVASC [Concomitant]
     Dosage: 2.5 MG, UNK
  6. ARICEPT [Concomitant]
  7. ASPIRIN [Concomitant]
     Dosage: 81 MG, UNK
     Route: 048
  8. CAPTOPRIL [Concomitant]
  9. AREDIA [Suspect]
     Indication: BONE LOSS
     Dosage: 90 MG, QMO
  10. RENAGEL [Concomitant]
     Dosage: 800 MG, TID
     Route: 048
  11. LISINOPRIL [Concomitant]
     Dosage: 40 MG, UNK
  12. VITAMIN B6 [Concomitant]
     Dosage: 100 MG,
     Route: 048
  13. PROCRIT                            /00909301/ [Concomitant]
  14. HYDROCODONE [Concomitant]
  15. DOCUSATE CALCIUM [Concomitant]
     Dosage: 240 MG, PRN
     Route: 048
  16. NIFEDIPINE [Concomitant]
  17. MAXZIDE [Concomitant]
  18. VELCADE [Concomitant]
  19. TRIAMTERENE [Concomitant]
  20. CALCITRIOL [Concomitant]
     Dosage: 0.25 MG, UNK
  21. PREDNISONE TAB [Concomitant]
  22. FUROSEMIDE [Concomitant]
     Dosage: 20 MG, UNK
  23. DEXAMETHASONE [Concomitant]

REACTIONS (73)
  - NEPHROPATHY TOXIC [None]
  - OSTEOMYELITIS [None]
  - ARTERIOVENOUS FISTULA SITE COMPLICATION [None]
  - CARDIAC MURMUR [None]
  - CORONARY ARTERY DISEASE [None]
  - PERICARDIAL EFFUSION [None]
  - HYPOXIA [None]
  - FLUID OVERLOAD [None]
  - DECREASED APPETITE [None]
  - DEATH [None]
  - BLOOD GLUCOSE DECREASED [None]
  - PROTEINURIA [None]
  - OSTEONECROSIS OF JAW [None]
  - OEDEMA MOUTH [None]
  - ANXIETY [None]
  - PHYSICAL DISABILITY [None]
  - NEUROPATHY PERIPHERAL [None]
  - CHONDROCALCINOSIS PYROPHOSPHATE [None]
  - MENTAL STATUS CHANGES [None]
  - INTERVERTEBRAL DISC DEGENERATION [None]
  - ARTHRALGIA [None]
  - BLINDNESS [None]
  - SWELLING [None]
  - POOR PERSONAL HYGIENE [None]
  - HYPERKALAEMIA [None]
  - THROMBOCYTOPENIA [None]
  - BREAST OEDEMA [None]
  - PULMONARY HYPERTENSION [None]
  - DECUBITUS ULCER [None]
  - HYPOTENSION [None]
  - ANAEMIA OF CHRONIC DISEASE [None]
  - DENTAL CARIES [None]
  - HYPERPARATHYROIDISM [None]
  - CARDIOMEGALY [None]
  - BACK PAIN [None]
  - OEDEMA PERIPHERAL [None]
  - PULMONARY OEDEMA [None]
  - ARRHYTHMIA [None]
  - BLOOD CREATININE INCREASED [None]
  - PAIN [None]
  - FOOT FRACTURE [None]
  - BRONCHITIS [None]
  - DYSPNOEA [None]
  - HYPOGLYCAEMIA [None]
  - COR PULMONALE [None]
  - DEAFNESS [None]
  - AZOTAEMIA [None]
  - INJURY [None]
  - HALLUCINATION [None]
  - COMPRESSION FRACTURE [None]
  - ARTERIOSCLEROSIS [None]
  - LOCAL SWELLING [None]
  - PANCYTOPENIA [None]
  - NEUTROPENIA [None]
  - SYNCOPE [None]
  - NEPHROSCLEROSIS [None]
  - OPEN WOUND [None]
  - TOOTH DISORDER [None]
  - CATARACT [None]
  - JOINT EFFUSION [None]
  - MULTIPLE MYELOMA [None]
  - SPINAL CORD COMPRESSION [None]
  - METABOLIC ACIDOSIS [None]
  - ENCEPHALOPATHY [None]
  - DEPRESSION [None]
  - RENAL FAILURE CHRONIC [None]
  - BONE DISORDER [None]
  - DEMENTIA [None]
  - INTRACRANIAL VENOUS SINUS THROMBOSIS [None]
  - BLOOD LACTIC ACID INCREASED [None]
  - MUSCULAR WEAKNESS [None]
  - RESPIRATORY DISTRESS [None]
  - SEPSIS [None]
